FAERS Safety Report 23751862 (Version 1)
Quarter: 2024Q2

REPORT INFORMATION
  Report Type: Report from Study
  Country: US (occurrence: US)
  Receive Date: 20240417
  Receipt Date: 20240417
  Transmission Date: 20240716
  Serious: Yes (Hospitalization, Other)
  Sender: FDA-Public Use
  Company Number: US-UCBSA-2024017211

PATIENT
  Sex: Female

DRUGS (2)
  1. BRIVARACETAM [Suspect]
     Active Substance: BRIVARACETAM
     Indication: Seizure
     Dosage: 50 MILLIGRAM, 2X/DAY (BID)
     Route: 048
  2. TEGRETOL [Suspect]
     Active Substance: CARBAMAZEPINE
     Indication: Product used for unknown indication
     Dosage: UNK

REACTIONS (15)
  - Gastroenteritis viral [Not Recovered/Not Resolved]
  - Back pain [Not Recovered/Not Resolved]
  - Feeling abnormal [Not Recovered/Not Resolved]
  - Blood sodium decreased [Not Recovered/Not Resolved]
  - Blood potassium decreased [Not Recovered/Not Resolved]
  - Blood magnesium decreased [Not Recovered/Not Resolved]
  - Pneumococcal immunisation [Unknown]
  - Influenza immunisation [Unknown]
  - COVID-19 immunisation [Unknown]
  - Knee arthroplasty [Unknown]
  - COVID-19 [Unknown]
  - Herpes zoster [Not Recovered/Not Resolved]
  - Neuralgia [Not Recovered/Not Resolved]
  - Therapy interrupted [Unknown]
  - Product availability issue [Unknown]

NARRATIVE: CASE EVENT DATE: 20210101
